FAERS Safety Report 11003325 (Version 1)
Quarter: 2015Q2

REPORT INFORMATION
  Report Type: Spontaneous
  Country: US (occurrence: US)
  Receive Date: 20150409
  Receipt Date: 20150409
  Transmission Date: 20150821
  Serious: No
  Sender: FDA-Public Use
  Company Number: US-ASTRAZENECA-2015SE31670

PATIENT
  Age: 60 Year
  Sex: Male
  Weight: 81.6 kg

DRUGS (2)
  1. NEXIUM [Suspect]
     Active Substance: ESOMEPRAZOLE MAGNESIUM
     Indication: GASTROOESOPHAGEAL REFLUX DISEASE
     Route: 048
     Dates: start: 201501
  2. NEXIUM [Suspect]
     Active Substance: ESOMEPRAZOLE MAGNESIUM
     Indication: GASTROOESOPHAGEAL REFLUX DISEASE
     Route: 048
     Dates: start: 201502, end: 20150328

REACTIONS (6)
  - Heart rate increased [Unknown]
  - Pyrexia [Unknown]
  - Abdominal distension [Unknown]
  - Feeling jittery [Unknown]
  - Gastrooesophageal reflux disease [Unknown]
  - Tremor [Unknown]

NARRATIVE: CASE EVENT DATE: 201502
